FAERS Safety Report 12886879 (Version 1)
Quarter: 2016Q4

REPORT INFORMATION
  Report Type: Spontaneous
  Country: US (occurrence: US)
  Receive Date: 20161026
  Receipt Date: 20161026
  Transmission Date: 20170207
  Serious: No
  Sender: FDA-Public Use
  Company Number: US-ENDO PHARMACEUTICALS INC.-2016-005487

PATIENT
  Sex: Female

DRUGS (4)
  1. BELBUCA [Suspect]
     Active Substance: BUPRENORPHINE HYDROCHLORIDE
     Route: 002
     Dates: start: 2016
  2. BELBUCA [Suspect]
     Active Substance: BUPRENORPHINE HYDROCHLORIDE
     Indication: PAIN
     Route: 002
     Dates: start: 20160822, end: 2016
  3. LYRICA [Concomitant]
     Active Substance: PREGABALIN
     Indication: PAIN MANAGEMENT
  4. OXYCODONE HYDROCHLORIDE. [Concomitant]
     Active Substance: OXYCODONE HYDROCHLORIDE
     Indication: BREAKTHROUGH PAIN

REACTIONS (1)
  - Mouth swelling [Recovered/Resolved]

NARRATIVE: CASE EVENT DATE: 2016
